FAERS Safety Report 16783572 (Version 2)
Quarter: 2019Q3

REPORT INFORMATION
  Report Type: Report from Study
  Country: None (occurrence: TR)
  Receive Date: 20190907
  Receipt Date: 20190924
  Transmission Date: 20191005
  Serious: Yes (Hospitalization)
  Sender: FDA-Public Use
  Company Number: TR-ABBVIE-19K-161-2914139-00

PATIENT
  Age: 66 Year
  Sex: Female
  Weight: 55 kg

DRUGS (5)
  1. DUODOPA [Suspect]
     Active Substance: CARBIDOPA\LEVODOPA
     Indication: PARKINSON^S DISEASE
     Dosage: MORNING DOSE (ML): 7.00 CONTINUOUS DOSE (ML): 3.40 EXTRA DOSE (ML): 1.00
     Route: 050
     Dates: start: 20190903, end: 20190904
  2. MADOPAR [Concomitant]
     Active Substance: BENSERAZIDE HYDROCHLORIDE\LEVODOPA
     Indication: PARKINSON^S DISEASE
     Route: 048
     Dates: start: 2018
  3. PEXOLA SR [Concomitant]
     Indication: PARKINSON^S DISEASE
     Dosage: SUSTAINED RELEASE
     Route: 048
     Dates: start: 2019
  4. DOPADEX SR [Concomitant]
     Indication: PARKINSON^S DISEASE
     Dosage: SUSTAINED RELEASE
     Route: 048
     Dates: start: 2019
  5. PK-MERZ [Concomitant]
     Active Substance: AMANTADINE
     Indication: PARKINSON^S DISEASE
     Route: 048
     Dates: start: 2001

REACTIONS (1)
  - Device dislocation [Not Recovered/Not Resolved]

NARRATIVE: CASE EVENT DATE: 20190904
